FAERS Safety Report 12298876 (Version 1)
Quarter: 2016Q2

REPORT INFORMATION
  Report Type: Report from Study
  Country: JP (occurrence: JP)
  Receive Date: 20160425
  Receipt Date: 20160425
  Transmission Date: 20160815
  Serious: Yes (Life-Threatening)
  Sender: FDA-Public Use
  Company Number: JP-ACCORD-039833

PATIENT
  Age: 15 Year
  Sex: Male

DRUGS (4)
  1. CYCLOPHOSPHAMIDE/CYCLOPHOSPHAMIDE MONOHYDRATE [Concomitant]
  2. METHOTREXATE [Suspect]
     Active Substance: METHOTREXATE
     Indication: PROPHYLAXIS AGAINST GRAFT VERSUS HOST DISEASE
     Dosage: 15 MG/M^2 AT DAY 1 AND ALSO RECEIVED AT 10 MG/M^2 AT DAYS 3, 6, AND 11 AFTER MARROW INFUSION
  3. TACROLIMUS. [Suspect]
     Active Substance: TACROLIMUS
     Indication: PROPHYLAXIS AGAINST GRAFT VERSUS HOST DISEASE
     Dosage: 0.02 MG/KG INFUSION I.V. DRIP FROM DAY 1 TO DAY +30 AFTER TRANSPLANT
  4. ANTITHYMOCYTE IMMUNOGLOBULIN [Concomitant]
     Active Substance: THYMOCYTE IMMUNE GLOBULIN NOS

REACTIONS (2)
  - Drug ineffective [Unknown]
  - Epstein-Barr virus associated lymphoproliferative disorder [Unknown]
